FAERS Safety Report 11350180 (Version 1)
Quarter: 2015Q3

REPORT INFORMATION
  Report Type: Spontaneous
  Country: US (occurrence: None)
  Receive Date: 20150709
  Receipt Date: 20150709
  Transmission Date: 20151125
  Serious: Yes (Hospitalization)
  Sender: FDA-Public Use
  Company Number: PHEH2011US011535

PATIENT
  Age: 83 Year
  Sex: Female

DRUGS (8)
  1. AMIODARONE [Concomitant]
     Active Substance: AMIODARONE
  2. GLEEVEC [Suspect]
     Active Substance: IMATINIB MESYLATE
     Indication: CHRONIC LYMPHOCYTIC LEUKAEMIA
     Route: 048
     Dates: start: 1997
  3. PROBIOTIC//BIFIDOBACTERIUM LACTIS (BIFIDOBACTERIUM LACTIS) [Concomitant]
  4. METOPROLOL [Concomitant]
     Active Substance: METOPROLOL
  5. HYOSCYAMINE SULFATE. [Concomitant]
     Active Substance: HYOSCYAMINE SULFATE
  6. IMBRUVICA [Suspect]
     Active Substance: IBRUTINIB
     Indication: CHRONIC LYMPHOCYTIC LEUKAEMIA
     Dates: start: 20140719, end: 2014
  7. ERGOCALCIFEROL. [Concomitant]
     Active Substance: ERGOCALCIFEROL
  8. SIMVASTATIN. [Concomitant]
     Active Substance: SIMVASTATIN

REACTIONS (2)
  - Diarrhoea [None]
  - Gastrointestinal haemorrhage [None]

NARRATIVE: CASE EVENT DATE: 2014
